FAERS Safety Report 5932182-4 (Version None)
Quarter: 2008Q4

REPORT INFORMATION
  Report Type: 
  Country: None (occurrence: None)
  Receive Date: 20081023
  Receipt Date: 20080807
  Transmission Date: 20090506
  Serious: Yes (Hospitalization)
  Sender: FDA-Public Use
  Company Number: CL000422008

PATIENT
  Age: 62 Year
  Sex: Male

DRUGS (4)
  1. CIPROFLOXACIN [Suspect]
     Indication: LOWER RESPIRATORY TRACT INFECTION
     Dosage: 500MG ORAL
     Route: 048
  2. BECLOMETHASONE DIPROPIONATE [Concomitant]
  3. PREDNISOLONE [Concomitant]
  4. ALBUTEROL SULFATE [Concomitant]

REACTIONS (5)
  - ABASIA [None]
  - GAIT DISTURBANCE [None]
  - PAIN IN EXTREMITY [None]
  - TENDON RUPTURE [None]
  - WOUND DECOMPOSITION [None]
